FAERS Safety Report 10620753 (Version 1)
Quarter: 2014Q4

REPORT INFORMATION
  Report Type: Spontaneous
  Country: US (occurrence: US)
  Receive Date: 20141202
  Receipt Date: 20141202
  Transmission Date: 20150529
  Serious: No
  Sender: FDA-Public Use
  Company Number: US-SA-2014SA045216

PATIENT
  Sex: Male

DRUGS (2)
  1. SENSIPAR [Suspect]
     Active Substance: CINACALCET HYDROCHLORIDE
     Indication: CHRONIC KIDNEY DISEASE
     Dosage: SENSIPAR DOSE IS 30 MG ONCE A DAY WITH A MEAL
     Route: 065
     Dates: start: 20140301
  2. RENVELA [Suspect]
     Active Substance: SEVELAMER CARBONATE
     Indication: CHRONIC KIDNEY DISEASE
     Dosage: RENVELA DOSE IS 1600 MG THREE TIMES A DAY WITH MEALS
     Route: 065
     Dates: start: 20140301

REACTIONS (1)
  - Hyperphosphataemia [Not Recovered/Not Resolved]
